FAERS Safety Report 9800922 (Version 2)
Quarter: 2014Q1

REPORT INFORMATION
  Report Type: Spontaneous
  Country: NL (occurrence: NL)
  Receive Date: 20140107
  Receipt Date: 20140211
  Transmission Date: 20141002
  Serious: Yes (Other)
  Sender: FDA-Public Use
  Company Number: NL-CELGENEUS-114-21880-13112425

PATIENT
  Age: 52 Year
  Sex: Male

DRUGS (6)
  1. REVLIMID [Suspect]
     Indication: PLASMA CELL MYELOMA
     Route: 048
     Dates: start: 200712
  2. VALACICLOVIR [Concomitant]
     Indication: HERPES ZOSTER
     Dosage: 1000 MILLIGRAM
     Route: 048
     Dates: start: 2006
  3. AMITRIPTYLINE [Concomitant]
     Indication: HERPES ZOSTER
     Dosage: 30 MILLIGRAM
     Route: 048
     Dates: start: 2006
  4. ESOMEPRAZOLE [Concomitant]
     Indication: PRODUCT USED FOR UNKNOWN INDICATION
     Dosage: 20 MILLIGRAM
     Route: 048
     Dates: start: 2006
  5. TAMSULOSINE [Concomitant]
     Indication: BENIGN PROSTATIC HYPERPLASIA
     Dosage: .4 MILLIGRAM
     Route: 048
     Dates: start: 2006
  6. ALENDRANINEZUUR [Concomitant]
     Indication: PLASMA CELL MYELOMA
     Route: 048
     Dates: start: 2006

REACTIONS (1)
  - Graft versus host disease [Recovered/Resolved]
